FAERS Safety Report 16372687 (Version 8)
Quarter: 2022Q1

REPORT INFORMATION
  Report Type: Spontaneous
  Country: US (occurrence: US)
  Receive Date: 20190530
  Receipt Date: 20220127
  Transmission Date: 20220424
  Serious: No
  Sender: FDA-Public Use
  Company Number: US-PFIZER INC-2018535589

PATIENT
  Age: 76 Year
  Sex: Female
  Weight: 54.422 kg

DRUGS (5)
  1. LYRICA [Suspect]
     Active Substance: PREGABALIN
     Indication: Spinal stenosis
     Dosage: 75 MG, 1X/DAY (IN THE MORNING)
  2. LYRICA [Suspect]
     Active Substance: PREGABALIN
     Indication: Neck pain
     Dosage: 250 MG, DAILY (100 MG IN THE MORNING, 75 MG AT NOON AND 75 MG AT NIGHT)
     Dates: start: 201903
  3. LYRICA [Suspect]
     Active Substance: PREGABALIN
     Indication: Cervical radiculopathy
     Dosage: 100 MG, 3X/DAY
     Dates: start: 201811
  4. LYRICA [Suspect]
     Active Substance: PREGABALIN
     Indication: Neuralgia
  5. OXYCODONE [Concomitant]
     Active Substance: OXYCODONE
     Dosage: 5 MG (3 THREE WEEKS)

REACTIONS (5)
  - Drug ineffective [Unknown]
  - Product dispensing error [Unknown]
  - Weight increased [Unknown]
  - Spinal stenosis [Not Recovered/Not Resolved]
  - Condition aggravated [Not Recovered/Not Resolved]

NARRATIVE: CASE EVENT DATE: 20190314
